FAERS Safety Report 21498731 (Version 1)
Quarter: 2022Q4

REPORT INFORMATION
  Report Type: Spontaneous
  Country: US (occurrence: None)
  Receive Date: 20221022
  Receipt Date: 20221022
  Transmission Date: 20230113
  Serious: Yes (Hospitalization)
  Sender: FDA-Public Use
  Company Number: None

PATIENT
  Age: 11 Year
  Sex: Male
  Weight: 33.2 kg

DRUGS (11)
  1. CYTARABINE [Suspect]
     Active Substance: CYTARABINE
     Dates: end: 20160128
  2. DEXAMETHASONE [Suspect]
     Active Substance: DEXAMETHASONE
     Dates: end: 20160224
  3. METHOTREXATE [Concomitant]
     Active Substance: METHOTREXATE
     Dates: end: 20160225
  4. ONCASPAR [Suspect]
     Active Substance: PEGASPARGASE
     Dates: end: 20160131
  5. VINCRISTINE SULFATE [Suspect]
     Active Substance: VINCRISTINE SULFATE
     Dates: end: 20160218
  6. CYCLOPHOSPHAMIDE [Concomitant]
  7. Cytarabine Low Dose [Concomitant]
  8. DOXORUBICIN [Concomitant]
     Active Substance: DOXORUBICIN
  9. MERCAPTOPURINE [Concomitant]
     Active Substance: MERCAPTOPURINE
  10. Methotrexate capizzi [Concomitant]
  11. THIOGUANINE [Concomitant]
     Active Substance: THIOGUANINE

REACTIONS (4)
  - Cytopenia [None]
  - Blast cells present [None]
  - Acute myeloid leukaemia [None]
  - Chronic myelomonocytic leukaemia (in remission) [None]

NARRATIVE: CASE EVENT DATE: 20220930
